FAERS Safety Report 8417866 (Version 4)
Quarter: 2013Q2

REPORT INFORMATION
  Report Type: Spontaneous
  Country: CA (occurrence: CA)
  Receive Date: 20120221
  Receipt Date: 20130531
  Transmission Date: 20140414
  Serious: Yes (Other)
  Sender: FDA-Public Use
  Company Number: CA-JNJFOC-20120205692

PATIENT
  Age: 61 Year
  Sex: Female
  Weight: 79.38 kg

DRUGS (12)
  1. REMICADE [Suspect]
     Indication: CROHN^S DISEASE
     Dosage: HAD 2 INFUSIONS
     Route: 042
     Dates: start: 200911
  2. REMICADE [Suspect]
     Indication: CROHN^S DISEASE
     Route: 042
     Dates: start: 201201
  3. REMICADE [Suspect]
     Indication: CROHN^S DISEASE
     Route: 042
     Dates: start: 20081008, end: 200904
  4. REMICADE [Suspect]
     Indication: CROHN^S DISEASE
     Dosage: 2ND INFUSION
     Route: 042
     Dates: start: 20120209, end: 20120209
  5. TYLENOL [Concomitant]
     Indication: PREMEDICATION
     Route: 048
     Dates: start: 20120209
  6. BENADRYL [Concomitant]
     Indication: PREMEDICATION
     Route: 048
     Dates: start: 20120209
  7. HYDROCORTISONE [Concomitant]
     Indication: PREMEDICATION
     Route: 042
     Dates: start: 20120209
  8. SYNTHROID [Concomitant]
     Indication: THYROID DISORDER
     Dosage: START DATE: YEARS AGO
     Route: 065
  9. GABAPENTINE [Concomitant]
     Indication: BACK PAIN
     Dosage: START DATE: ^YEARS UNSPECIFIED^
     Route: 065
     Dates: end: 201201
  10. MORPHINE [Concomitant]
     Indication: BACK PAIN
     Route: 065
     Dates: start: 201108
  11. PAXIL [Concomitant]
     Indication: NEUROPATHY PERIPHERAL
     Dosage: 8-10 YEARS
     Route: 065
  12. TECTA [Concomitant]
     Indication: HYPERCHLORHYDRIA
     Route: 065
     Dates: start: 2012

REACTIONS (13)
  - Infusion related reaction [Recovering/Resolving]
  - Back pain [Recovering/Resolving]
  - Musculoskeletal pain [Recovering/Resolving]
  - Pruritus generalised [Recovering/Resolving]
  - Hypoaesthesia oral [Recovering/Resolving]
  - Pain in jaw [Recovering/Resolving]
  - Dyspnoea [Recovering/Resolving]
  - Bronchospasm [Recovering/Resolving]
  - Oropharyngeal pain [Recovering/Resolving]
  - Ovarian cancer [Unknown]
  - Spinal operation [Unknown]
  - Flushing [Recovering/Resolving]
  - Dysphonia [Recovering/Resolving]
